FAERS Safety Report 17991524 (Version 2)
Quarter: 2020Q3

REPORT INFORMATION
  Report Type: Spontaneous
  Country: ES (occurrence: ES)
  Receive Date: 20200707
  Receipt Date: 20200721
  Transmission Date: 20201103
  Serious: Yes (Death, Hospitalization)
  Sender: FDA-Public Use
  Company Number: NVSC2020ES190698

PATIENT
  Age: 72 Year

DRUGS (6)
  1. HYDROXYCHLOROQUINE [Suspect]
     Active Substance: HYDROXYCHLOROQUINE
     Indication: COVID-19 TREATMENT
     Route: 065
  2. INTERFERON BETA?1B [Suspect]
     Active Substance: INTERFERON BETA-1B
     Indication: COVID-19 TREATMENT
     Dosage: UNK
     Route: 058
  3. LOPINAVIR + RITONAVIR [Suspect]
     Active Substance: LOPINAVIR\RITONAVIR
     Indication: COVID-19 TREATMENT
     Route: 065
  4. CEFTRIAXONE. [Suspect]
     Active Substance: CEFTRIAXONE
     Indication: COVID-19 TREATMENT
     Route: 065
  5. METILPREDNISOLONA [Suspect]
     Active Substance: METHYLPREDNISOLONE
     Indication: COVID-19 TREATMENT
     Dosage: UNK
     Route: 065
  6. AZITHROMYCIN ANHYDROUS. [Suspect]
     Active Substance: AZITHROMYCIN ANHYDROUS
     Indication: COVID-19 TREATMENT
     Dosage: UNK
     Route: 065

REACTIONS (3)
  - Electrocardiogram QT prolonged [Fatal]
  - Death [Fatal]
  - Drug-induced liver injury [Fatal]
